FAERS Safety Report 26041362 (Version 2)
Quarter: 2025Q4

REPORT INFORMATION
  Report Type: Spontaneous
  Country: US (occurrence: US)
  Receive Date: 20251113
  Receipt Date: 20251204
  Transmission Date: 20260118
  Serious: No
  Sender: ALIMERA
  Company Number: US-ALIMERA SCIENCES INC.-US-A16013-25-000046

PATIENT

DRUGS (1)
  1. YUTIQ [Suspect]
     Active Substance: FLUOCINOLONE ACETONIDE
     Indication: Product used for unknown indication
     Dosage: 0.18 MILLIGRAM, SINGLE- UNKNOWN EYE
     Route: 031

REACTIONS (3)
  - Medical device removal [Recovered/Resolved]
  - Device dislocation [Unknown]
  - Drug ineffective [Unknown]
